FAERS Safety Report 6199970-3 (Version None)
Quarter: 2009Q2

REPORT INFORMATION
  Report Type: 
  Country: None (occurrence: None)
  Receive Date: 20090522
  Receipt Date: 20090513
  Transmission Date: 20091009
  Serious: Yes (Hospitalization)
  Sender: FDA-Public Use
  Company Number: US-AVENTIS-200914188US

PATIENT
  Sex: Female

DRUGS (4)
  1. LANTUS [Suspect]
     Route: 058
  2. DIAZEPAM [Concomitant]
  3. LISINOPRIL [Concomitant]
  4. ATENOLOL [Concomitant]
     Dosage: DOSE: 1 TAB

REACTIONS (6)
  - FALL [None]
  - LUNG DISORDER [None]
  - MALAISE [None]
  - MYALGIA [None]
  - SPINAL FRACTURE [None]
  - VISUAL IMPAIRMENT [None]
